FAERS Safety Report 7074426-4 (Version None)
Quarter: 2010Q4

REPORT INFORMATION
  Report Type: 
  Country: None (occurrence: None)
  Receive Date: 20101029
  Receipt Date: 20101028
  Transmission Date: 20110411
  Serious: No
  Sender: FDA-Public Use
  Company Number: US-TEVA-253294USA

PATIENT
  Sex: Female
  Weight: 59.02 kg

DRUGS (7)
  1. ALBUTEROL SULFATE AUTOHALER [Suspect]
     Dosage: 2 PUFFS
     Route: 055
     Dates: start: 20101027, end: 20101027
  2. MONTELUKAST [Concomitant]
  3. DIPHENHYDRAMINE HCL [Concomitant]
  4. RANITIDINE [Concomitant]
  5. CETIRIZINE HYDROCHLORIDE [Concomitant]
  6. LORATADINE [Concomitant]
  7. HYDROXYZINE [Concomitant]

REACTIONS (3)
  - CHEST DISCOMFORT [None]
  - LIP SWELLING [None]
  - URTICARIA [None]
